FAERS Safety Report 12179486 (Version 1)
Quarter: 2016Q1

REPORT INFORMATION
  Report Type: Spontaneous
  Country: US (occurrence: None)
  Receive Date: 20160314
  Receipt Date: 20160314
  Transmission Date: 20160526
  Serious: No
  Sender: FDA-Public Use
  Company Number: None

PATIENT
  Age: 76 Year
  Sex: Male
  Weight: 68.95 kg

DRUGS (17)
  1. BIOTEN [Concomitant]
  2. TOUJEO INSULIN INJECTION [Concomitant]
  3. ANDROGEL [Concomitant]
     Active Substance: TESTOSTERONE
  4. DIOVAN/HYDROCHLOROTHIZSIDE [Concomitant]
  5. BABY ASPIRIN [Concomitant]
     Active Substance: ASPIRIN
  6. ALPHA LIPOIC [Concomitant]
  7. LEVOTHYROXINE. [Concomitant]
     Active Substance: LEVOTHYROXINE
  8. BYSTOLIC TABS [Concomitant]
  9. MULTI VITAMIN [Concomitant]
     Active Substance: VITAMINS
  10. VITAMIN B COMPLEX [Concomitant]
     Active Substance: CYANOCOBALAMIN\DEXPANTHENOL\NIACINAMIDE\PYRIDOXINE HYDROCHLORIDE\RIBOFLAVIN 5^-PHOSPHATE SODIUM\THIAMINE HYDROCHLORIDE\VITAMIN B COMPLEX
  11. JANUVIA [Suspect]
     Active Substance: SITAGLIPTIN PHOSPHATE
     Indication: DIABETES MELLITUS
     Dosage: 1 PILL ONCE DAILY TAKEN BY MOUTH
     Route: 048
     Dates: start: 20151022, end: 20160224
  12. CALCIUM CITRATE + D3 [Concomitant]
  13. NIFEDICAL XL [Concomitant]
     Active Substance: NIFEDIPINE
  14. PRAVASTATIN [Concomitant]
     Active Substance: PRAVASTATIN\PRAVASTATIN SODIUM
  15. VITAMIN C [Concomitant]
     Active Substance: ASCORBIC ACID
  16. FISH OIL [Concomitant]
     Active Substance: FISH OIL
  17. BUPROPION ST 150 MG MYLAN [Concomitant]
     Active Substance: BUPROPION

REACTIONS (1)
  - Alopecia [None]
